FAERS Safety Report 9759540 (Version 1)
Quarter: 2013Q4

REPORT INFORMATION
  Report Type: Spontaneous
  Country: US (occurrence: US)
  Receive Date: 20131216
  Receipt Date: 20131216
  Transmission Date: 20140711
  Serious: No
  Sender: FDA-Public Use
  Company Number: US-GILEAD-2010-0028011

PATIENT
  Age: 72 Year
  Sex: Male

DRUGS (13)
  1. LETAIRIS [Suspect]
     Indication: PULMONARY ARTERIAL HYPERTENSION
     Route: 048
     Dates: start: 20091230, end: 20100303
  2. LASIX [Concomitant]
  3. TORSEMIDE [Concomitant]
  4. LISINOPRIL [Concomitant]
  5. NORVASC [Concomitant]
  6. CLONIDINE HCL [Concomitant]
  7. ZOCOR [Concomitant]
  8. GLIMEPIRIDE [Concomitant]
  9. DESONIDE [Concomitant]
  10. COSOPT [Concomitant]
  11. ALPHAGAN-P [Concomitant]
  12. TRAVATAN [Concomitant]
  13. FISH OIL [Concomitant]

REACTIONS (1)
  - Oedema [Recovering/Resolving]
